FAERS Safety Report 23556386 (Version 2)
Quarter: 2024Q2

REPORT INFORMATION
  Report Type: Spontaneous
  Country: HU (occurrence: HU)
  Receive Date: 20240223
  Receipt Date: 20240520
  Transmission Date: 20240716
  Serious: Yes (Other)
  Sender: FDA-Public Use
  Company Number: None

PATIENT
  Age: 42 Year
  Sex: Female
  Weight: 78 kg

DRUGS (2)
  1. BRIVIACT [Suspect]
     Active Substance: BRIVARACETAM
     Indication: Temporal lobe epilepsy
     Dosage: 100 MILLIGRAM PER DAY
     Route: 048
     Dates: start: 20230703, end: 20240101
  2. MAGNESIUM [Concomitant]
     Active Substance: MAGNESIUM
     Indication: Product used for unknown indication
     Dosage: 500 MILLIGRAM PER DAY
     Route: 048

REACTIONS (7)
  - Suicidal ideation [Recovered/Resolved]
  - Tension [Recovered/Resolved]
  - Anger [Recovered/Resolved]
  - Vertigo [Recovered/Resolved]
  - Psychiatric symptom [Recovered/Resolved]
  - Aggression [Recovered/Resolved]
  - Somnolence [Recovered/Resolved]

NARRATIVE: CASE EVENT DATE: 20230703
